FAERS Safety Report 13570992 (Version 2)
Quarter: 2021Q2

REPORT INFORMATION
  Report Type: Spontaneous
  Country: US (occurrence: US)
  Receive Date: 20170523
  Receipt Date: 20210409
  Transmission Date: 20210716
  Serious: Yes (Life-Threatening, Other)
  Sender: FDA-Public Use
  Company Number: US-AUROBINDO-AUR-APL-2017-34293

PATIENT
  Age: 50 Year
  Sex: Male

DRUGS (3)
  1. CEFTAROLINE [Concomitant]
     Active Substance: CEFTAROLINE
     Dosage: 600 MILLIGRAM, 3 TIMES A DAY
     Route: 042
  2. CEFTAROLINE [Concomitant]
     Active Substance: CEFTAROLINE
     Indication: STAPHYLOCOCCAL INFECTION
     Dosage: 600 MILLIGRAM, TWO TIMES A DAY
     Route: 042
  3. VANCOMYCIN INJECTION [Suspect]
     Active Substance: VANCOMYCIN
     Indication: STAPHYLOCOCCAL INFECTION
     Dosage: 1000 MG (15 MG/KG) EVERY 12 HOURS
     Route: 042

REACTIONS (1)
  - Drug ineffective [Unknown]
